FAERS Safety Report 4994793-2 (Version None)
Quarter: 2006Q1

REPORT INFORMATION
  Report Type: 
  Country: None (occurrence: None)
  Receive Date: 20060310
  Receipt Date: 20060113
  Transmission Date: 20060701
  Serious: Yes (Death)
  Sender: FDA-Public Use
  Company Number: 027

PATIENT
  Sex: Male
  Weight: 70.7611 kg

DRUGS (5)
  1. FAZACLO ODT [Suspect]
     Dosage: 400MG DAILY
     Dates: start: 20050501, end: 20051203
  2. ABILIFY [Concomitant]
  3. COGENTIN [Concomitant]
  4. ATIVAN [Concomitant]
  5. ZYPREXA [Concomitant]

REACTIONS (2)
  - ASPIRATION [None]
  - CARDIO-RESPIRATORY ARREST [None]
